FAERS Safety Report 10134006 (Version 3)
Quarter: 2015Q1

REPORT INFORMATION
  Report Type: Spontaneous
  Country: IE (occurrence: IE)
  Receive Date: 20140428
  Receipt Date: 20150120
  Transmission Date: 20150720
  Serious: Yes (Other)
  Sender: FDA-Public Use
  Company Number: US-ASTRAZENECA-2014SE28216

PATIENT
  Age: 1 Year
  Sex: Male

DRUGS (7)
  1. SYNAGIS [Suspect]
     Active Substance: PALIVIZUMAB
     Indication: ACUTE RESPIRATORY DISTRESS SYNDROME
     Route: 030
     Dates: start: 20140417, end: 20140417
  2. SYNAGIS [Suspect]
     Active Substance: PALIVIZUMAB
     Indication: PREMATURE BABY
     Route: 030
     Dates: end: 201405
  3. SYNAGIS [Suspect]
     Active Substance: PALIVIZUMAB
     Indication: ACUTE RESPIRATORY DISTRESS SYNDROME
     Route: 030
     Dates: start: 20131121, end: 20131121
  4. SYNAGIS [Suspect]
     Active Substance: PALIVIZUMAB
     Indication: PREMATURE BABY
     Route: 030
     Dates: start: 20140417, end: 20140417
  5. SYNAGIS [Suspect]
     Active Substance: PALIVIZUMAB
     Indication: ACUTE RESPIRATORY DISTRESS SYNDROME
     Route: 030
     Dates: end: 201405
  6. SYNAGIS [Suspect]
     Active Substance: PALIVIZUMAB
     Indication: PREMATURE BABY
     Route: 030
     Dates: start: 20131121, end: 20131121
  7. PINAMOX [Concomitant]
     Indication: PRODUCT USED FOR UNKNOWN INDICATION
     Route: 065

REACTIONS (7)
  - Oropharyngeal pain [Recovering/Resolving]
  - Ear infection [Recovering/Resolving]
  - Malaise [Recovering/Resolving]
  - Rash [Recovered/Resolved]
  - Viral infection [Unknown]
  - Pharyngitis [Recovering/Resolving]
  - Body temperature increased [Recovering/Resolving]

NARRATIVE: CASE EVENT DATE: 201404
